FAERS Safety Report 15556897 (Version 1)
Quarter: 2018Q4

REPORT INFORMATION
  Report Type: Report from Study
  Country: DE (occurrence: DE)
  Receive Date: 20181026
  Receipt Date: 20181026
  Transmission Date: 20190205
  Serious: Yes (Hospitalization, Other)
  Sender: FDA-Public Use
  Company Number: DE-SHIRE-DE201806570

PATIENT

DRUGS (4)
  1. NATPARA (PARATHYROID HORMONE) [Suspect]
     Active Substance: PARATHYROID HORMONE
     Indication: HYPOPARATHYROIDISM
     Dosage: 50 MG, 1X/DAY:QD
     Route: 058
     Dates: start: 20171108
  2. VITAMIN D-DEKRISTOL [Concomitant]
     Indication: HYPOPARATHYROIDISM
     Dosage: 200000 IE WEEKLY
  3. CALCIUM VERLA [Concomitant]
     Indication: HYPOCALCAEMIA
     Dosage: 600 MG, 2X/DAY:BID
     Route: 048
  4. MAGNESIUM [Concomitant]
     Active Substance: MAGNESIUM
     Indication: HYPOMAGNESAEMIA
     Dosage: UNK

REACTIONS (2)
  - Blood calcium increased [Recovering/Resolving]
  - Haematochezia [Recovered/Resolved]

NARRATIVE: CASE EVENT DATE: 20180122
